FAERS Safety Report 6210109-8 (Version None)
Quarter: 2009Q2

REPORT INFORMATION
  Report Type: 
  Country: None (occurrence: None)
  Receive Date: 20090601
  Receipt Date: 20090522
  Transmission Date: 20091009
  Serious: Yes (Hospitalization, Other)
  Sender: FDA-Public Use
  Company Number: US-BIOGENIDEC-2009BI013217

PATIENT
  Age: 19 Year
  Sex: Female
  Weight: 49 kg

DRUGS (9)
  1. TYSABRI [Suspect]
     Indication: MULTIPLE SCLEROSIS
     Route: 042
     Dates: start: 20070920
  2. LANTUS [Concomitant]
  3. OMEPRAZOLE [Concomitant]
  4. ZOLOFT [Concomitant]
  5. POTASSIUM CHLORIDE [Concomitant]
     Indication: DIABETIC KETOACIDOSIS
  6. POTASSIUM CHLORIDE [Concomitant]
     Indication: NAUSEA
  7. POTASSIUM CHLORIDE [Concomitant]
     Indication: VOMITING
  8. POTASSIUM CHLORIDE [Concomitant]
     Indication: CHEST PAIN
  9. POTASSIUM CHLORIDE [Concomitant]
     Indication: PAIN

REACTIONS (6)
  - CHEST PAIN [None]
  - DIABETIC KETOACIDOSIS [None]
  - NAUSEA [None]
  - PAIN [None]
  - URINARY TRACT INFECTION [None]
  - VOMITING [None]
